FAERS Safety Report 14442111 (Version 1)
Quarter: 2018Q1

REPORT INFORMATION
  Report Type: Spontaneous
  Country: US (occurrence: US)
  Receive Date: 20180125
  Receipt Date: 20180125
  Transmission Date: 20180509
  Serious: Yes (Other)
  Sender: FDA-Public Use
  Company Number: US-TEVA-2018-US-850259

PATIENT
  Age: 25 Year
  Sex: Female

DRUGS (4)
  1. PREDNISONE. [Suspect]
     Active Substance: PREDNISONE
     Indication: GRANULOMA
     Dosage: 100 MG DAILY
     Route: 048
  2. PREDNISONE. [Suspect]
     Active Substance: PREDNISONE
     Indication: GRANULOMA
     Dosage: 60 MG DAILY OVER 1 WEEK
     Route: 048
  3. PREDNISONE. [Suspect]
     Active Substance: PREDNISONE
     Indication: GRANULOMA
     Dosage: 15 MG DAILY
     Route: 048
  4. CYCLOSPORINE A [Suspect]
     Active Substance: CYCLOSPORINE
     Route: 065

REACTIONS (2)
  - Retinal pigment epithelial tear [Unknown]
  - Hypertension [Unknown]
